FAERS Safety Report 8338261-9 (Version None)
Quarter: 2012Q2

REPORT INFORMATION
  Report Type: 
  Country: None (occurrence: None)
  Receive Date: 20120504
  Receipt Date: 20120427
  Transmission Date: 20120825
  Serious: Yes (Hospitalization, Disabling)
  Sender: FDA-Public Use
  Company Number: US-MERCK-1111USA02618

PATIENT
  Age: 59 Year
  Sex: Female

DRUGS (6)
  1. BONIVA [Suspect]
     Indication: OSTEOPOROSIS
     Route: 048
     Dates: start: 20070529, end: 20070718
  2. LYSINE [Concomitant]
     Route: 065
     Dates: start: 20050101
  3. SINGULAIR [Concomitant]
     Indication: HYPERSENSITIVITY
     Route: 048
  4. ASCORBIC ACID [Concomitant]
     Route: 065
     Dates: start: 20050101
  5. FOSAMAX [Suspect]
     Indication: OSTEOPOROSIS
     Route: 048
     Dates: start: 20070719, end: 20090622
  6. CALCIUM (UNSPECIFIED) AND VITAMIN D (UNSPECIFIED) [Concomitant]
     Route: 065
     Dates: start: 20050101

REACTIONS (3)
  - FEMUR FRACTURE [None]
  - ARTHROPATHY [None]
  - NEPHROLITHIASIS [None]
